FAERS Safety Report 8828296 (Version 1)
Quarter: 2012Q4

REPORT INFORMATION
  Report Type: 
  Country: US (occurrence: US)
  Receive Date: 20121008
  Receipt Date: 20121008
  Transmission Date: 20130627
  Serious: Yes (Death)
  Sender: FDA-Public Use
  Company Number: PHEH2012US019665

PATIENT
  Sex: Female

DRUGS (7)
  1. RECLAST [Suspect]
     Dosage: 5 mg, yearly
     Route: 042
     Dates: start: 20100818
  2. ANTIARRHYTHMICS [Concomitant]
  3. METOPROLOL [Concomitant]
     Route: 048
  4. AMBIEN [Concomitant]
     Route: 048
  5. ZOLOFT [Concomitant]
     Dosage: 100 mg, QD
     Route: 048
  6. WELLBUTRIN [Concomitant]
     Dosage: 150 mg, QD
     Route: 048
  7. CARDIAZEM [Concomitant]
     Dosage: 180 mg, QD
     Route: 048

REACTIONS (1)
  - Death [Fatal]
